FAERS Safety Report 7805022-6 (Version None)
Quarter: 2011Q4

REPORT INFORMATION
  Report Type: 
  Country: None (occurrence: None)
  Receive Date: 20111010
  Receipt Date: 20111003
  Transmission Date: 20120403
  Serious: Yes (Other)
  Sender: FDA-Public Use
  Company Number: US-GLAXOSMITHKLINE-A0946787A

PATIENT
  Age: 60 Year
  Sex: Female

DRUGS (2)
  1. ADVAIR DISKUS 100/50 [Suspect]
     Indication: RESPIRATORY DISORDER
     Dosage: 1PUFF PER DAY
     Route: 055
     Dates: start: 20020101
  2. CONCURRENT MEDICATIONS [Concomitant]

REACTIONS (6)
  - PRODUCT QUALITY ISSUE [None]
  - DRUG ADMINISTRATION ERROR [None]
  - HYPOXIA [None]
  - DRUG INEFFECTIVE [None]
  - CHEST DISCOMFORT [None]
  - INSOMNIA [None]
